FAERS Safety Report 12775915 (Version 1)
Quarter: 2016Q3

REPORT INFORMATION
  Report Type: Spontaneous
  Country: US (occurrence: US)
  Receive Date: 20160923
  Receipt Date: 20160923
  Transmission Date: 20161109
  Serious: Yes (Other)
  Sender: FDA-Public Use
  Company Number: US-SMITH AND NEPHEW, INC-2016SMT00808

PATIENT
  Sex: Male
  Weight: 71.3 kg

DRUGS (1)
  1. REGRANEX [Suspect]
     Active Substance: BECAPLERMIN
     Indication: DIABETIC ULCER
     Dosage: UNK UNK, 1X/DAY
     Route: 061
     Dates: start: 201608, end: 2016

REACTIONS (2)
  - Asthenia [Not Recovered/Not Resolved]
  - Osteomyelitis [Recovering/Resolving]

NARRATIVE: CASE EVENT DATE: 2016
